FAERS Safety Report 4283007-7 (Version None)
Quarter: 2004Q1

REPORT INFORMATION
  Report Type: 
  Country: None (occurrence: None)
  Receive Date: 20040129
  Receipt Date: 20040116
  Transmission Date: 20041129
  Serious: Yes (Death)
  Sender: FDA-Public Use
  Company Number: US-JNJFOC-20040103201

PATIENT
  Age: 84 Year
  Sex: Female

DRUGS (6)
  1. INFLIXIMAB (INFLIXIMAB, RECOMBINANT) LYOPHILIZED POWDER [Suspect]
     Indication: RHEUMATOID ARTHRITIS
     Dosage: INTRAVENOUS
     Route: 042
     Dates: start: 20011201, end: 20030101
  2. PREDNISONE [Concomitant]
  3. VERAPAMIL [Concomitant]
  4. CALCIUM + D [Concomitant]
  5. SINGULAIR [Concomitant]
  6. FOLIC ACID [Concomitant]

REACTIONS (1)
  - DEATH [None]
